FAERS Safety Report 24825140 (Version 1)
Quarter: 2025Q1

REPORT INFORMATION
  Report Type: Spontaneous
  Country: US (occurrence: None)
  Receive Date: 20250108
  Receipt Date: 20250108
  Transmission Date: 20250409
  Serious: Yes (Hospitalization)
  Sender: FDA-CTU
  Company Number: None

PATIENT
  Age: 58 Year
  Sex: Male

DRUGS (23)
  1. TACROLIMUS [Suspect]
     Active Substance: TACROLIMUS
     Indication: Heart transplant
     Dosage: 5 MG TWICE A DAY ORAL
     Route: 048
     Dates: start: 20241211
  2. MYCOPHENOLIC ACID [Suspect]
     Active Substance: MYCOPHENOLIC ACID
     Indication: Heart transplant
     Dosage: 720 MG TWICE A DAY ORAL ?
     Route: 048
     Dates: start: 20241211
  3. TACROLIMUS [Concomitant]
     Active Substance: TACROLIMUS
     Dates: start: 20241211
  4. TACROLIMUS [Concomitant]
     Active Substance: TACROLIMUS
     Dates: start: 20241211
  5. PREDNISONE [Concomitant]
     Active Substance: PREDNISONE
     Dates: start: 20241211
  6. PREDNISONE [Concomitant]
     Active Substance: PREDNISONE
     Dates: start: 20241211
  7. ROSUVASTATIN [Concomitant]
     Active Substance: ROSUVASTATIN
     Dates: start: 20241211
  8. BACTRIM [Concomitant]
     Active Substance: SULFAMETHOXAZOLE\TRIMETHOPRIM
     Dates: start: 20241211
  9. ASPIRIN [Concomitant]
     Active Substance: ASPIRIN
     Dates: start: 20241211
  10. Calcium citrate + Vitamin D3 [Concomitant]
     Dates: start: 20241211
  11. MINERALS\VITAMINS [Concomitant]
     Active Substance: MINERALS\VITAMINS
     Dates: start: 20241211
  12. FUROSEMIDE [Concomitant]
     Active Substance: FUROSEMIDE
     Dates: start: 20241211, end: 20250108
  13. mag-ox 400 mg [Concomitant]
     Dates: start: 20241211
  14. melatonin 3 mg [Concomitant]
     Dates: start: 20241211
  15. GABAPENTIN [Concomitant]
     Active Substance: GABAPENTIN
     Dates: start: 20241211
  16. OMEPRAZOLE [Concomitant]
     Active Substance: OMEPRAZOLE
     Dates: start: 20241211
  17. Humalog U-100 [Concomitant]
     Dates: start: 20241211
  18. HUMULIN N [Concomitant]
     Active Substance: INSULIN HUMAN
     Dates: start: 20241211
  19. NYSTATIN [Concomitant]
     Active Substance: NYSTATIN
     Dates: start: 20241211
  20. Valganciclovir 450 mg [Concomitant]
     Dates: start: 20241211
  21. Vitamin c 500mg [Concomitant]
     Dates: start: 20241211
  22. Vitamin D3 1000 units [Concomitant]
     Dates: start: 20241211
  23. Vitamin E 180 units [Concomitant]
     Dates: start: 20241211

REACTIONS (1)
  - Heart transplant rejection [None]

NARRATIVE: CASE EVENT DATE: 20241224
